FAERS Safety Report 8101468-X (Version None)
Quarter: 2012Q1

REPORT INFORMATION
  Report Type: 
  Country: None (occurrence: None)
  Receive Date: 20120129
  Receipt Date: 20111010
  Transmission Date: 20120608
  Serious: Yes (Other)
  Sender: FDA-Public Use
  Company Number: US-ABBOTT-11P-163-0863029-00

PATIENT
  Sex: Female
  Weight: 45.4 kg

DRUGS (6)
  1. AZOTHIAPRINE [Concomitant]
     Indication: CROHN'S DISEASE
  2. LOMOTIL [Concomitant]
     Indication: CROHN'S DISEASE
     Dosage: 1-2 TABS UP TO 4 TIMES DAILY AS NEEDED
  3. PRILOSEC [Concomitant]
     Indication: GASTROOESOPHAGEAL REFLUX DISEASE
  4. HUMIRA [Suspect]
     Indication: CROHN'S DISEASE
     Route: 058
     Dates: start: 20100901
  5. ZOLOFT [Concomitant]
     Indication: DEPRESSION
  6. LOMOTIL [Concomitant]
     Indication: DIARRHOEA

REACTIONS (4)
  - PERIRECTAL ABSCESS [None]
  - INJECTION SITE PAIN [None]
  - INCORRECT DOSE ADMINISTERED BY DEVICE [None]
  - NEEDLE ISSUE [None]
